FAERS Safety Report 11307055 (Version 5)
Quarter: 2016Q1

REPORT INFORMATION
  Report Type: Spontaneous
  Country: US (occurrence: US)
  Receive Date: 20150723
  Receipt Date: 20160317
  Transmission Date: 20160525
  Serious: Yes (Hospitalization)
  Sender: FDA-Public Use
  Company Number: US-ASTELLAS-2015US022373

PATIENT
  Age: 84 Year
  Sex: Female

DRUGS (4)
  1. MYRBETRIQ [Suspect]
     Active Substance: MIRABEGRON
     Indication: POLLAKIURIA
     Route: 048
     Dates: end: 20150618
  2. MYRBETRIQ [Suspect]
     Active Substance: MIRABEGRON
     Indication: URINARY INCONTINENCE
     Route: 048
     Dates: end: 20160305
  3. MYRBETRIQ [Suspect]
     Active Substance: MIRABEGRON
     Indication: POLLAKIURIA
     Route: 048
     Dates: start: 20150619
  4. MYRBETRIQ [Suspect]
     Active Substance: MIRABEGRON
     Indication: URINARY INCONTINENCE
     Route: 048

REACTIONS (6)
  - Blood pressure increased [Unknown]
  - Fall [Unknown]
  - Urinary tract infection [Unknown]
  - Drug ineffective [Unknown]
  - Nasopharyngitis [Unknown]
  - Blood pressure increased [Unknown]

NARRATIVE: CASE EVENT DATE: 20150620
